FAERS Safety Report 8619336-3 (Version None)
Quarter: 2012Q3

REPORT INFORMATION
  Report Type: 
  Country: None (occurrence: None)
  Receive Date: 20120824
  Receipt Date: 20120817
  Transmission Date: 20120928
  Serious: Yes (Other)
  Sender: FDA-Public Use
  Company Number: FR-PFIZER INC-2012202805

PATIENT
  Age: 70 Year
  Sex: Male

DRUGS (8)
  1. RAMIPRIL [Concomitant]
     Indication: CARDIAC DISORDER
     Dosage: UNK
  2. PRAVASTATIN [Concomitant]
     Indication: CARDIAC DISORDER
     Dosage: UNK
  3. ASPIRIN [Concomitant]
     Indication: CARDIAC DISORDER
     Dosage: UNK
  4. NEURONTIN [Suspect]
     Indication: EPILEPSY
     Dosage: 800 MG DAILY
  5. PREDNISONE [Interacting]
     Dosage: 10 MG, UNK
     Dates: start: 20120101
  6. PREDNISONE [Interacting]
     Dosage: 8 MG, UNK
  7. CARVEDILOL [Concomitant]
     Indication: CARDIAC DISORDER
     Dosage: UNK
  8. EZETIMIBE [Concomitant]
     Indication: CARDIAC DISORDER
     Dosage: UNK

REACTIONS (2)
  - DRUG INTERACTION [None]
  - EPILEPSY [None]
